FAERS Safety Report 11061673 (Version 2)
Quarter: 2015Q2

REPORT INFORMATION
  Report Type: Other
  Country: JP (occurrence: JP)
  Receive Date: 20150424
  Receipt Date: 20150519
  Transmission Date: 20150821
  Serious: Yes (Death)
  Sender: FDA-Public Use
  Company Number: JP-ACTELION-A-CH2015-116639

PATIENT
  Sex: Female

DRUGS (2)
  1. TRACLEER [Suspect]
     Active Substance: BOSENTAN\BOSENTAN MONOHYDRATE
     Indication: PULMONARY ARTERIAL HYPERTENSION
     Route: 048
  2. EPOPROSTENOL [Concomitant]
     Active Substance: EPOPROSTENOL
     Indication: PULMONARY ARTERIAL HYPERTENSION
     Route: 048

REACTIONS (3)
  - Pulmonary arterial hypertension [Fatal]
  - Condition aggravated [Fatal]
  - Eosinophilic myocarditis [Fatal]

NARRATIVE: CASE EVENT DATE: 201311
